FAERS Safety Report 23296515 (Version 1)
Quarter: 2023Q4

REPORT INFORMATION
  Report Type: Spontaneous
  Country: US (occurrence: US)
  Receive Date: 20231214
  Receipt Date: 20231214
  Transmission Date: 20240110
  Serious: No
  Sender: FDA-Public Use
  Company Number: US-009507513-2311USA006922

PATIENT
  Age: 65 Year
  Sex: Male

DRUGS (4)
  1. WELIREG [Suspect]
     Active Substance: BELZUTIFAN
     Indication: Renal cell carcinoma
     Dosage: 3 DOSAGE FORM (TABLET), QD
     Route: 048
     Dates: start: 20231102
  2. DEXAMETHASONE [Concomitant]
     Active Substance: DEXAMETHASONE
  3. MIRTAZAPINE [Concomitant]
     Active Substance: MIRTAZAPINE
  4. OMEPRAZOLE [Concomitant]
     Active Substance: OMEPRAZOLE

REACTIONS (3)
  - Abdominal pain upper [Not Recovered/Not Resolved]
  - Binge eating [Not Recovered/Not Resolved]
  - Abdominal rigidity [Not Recovered/Not Resolved]

NARRATIVE: CASE EVENT DATE: 20231101
